FAERS Safety Report 7306084-5 (Version None)
Quarter: 2011Q1

REPORT INFORMATION
  Report Type: 
  Country: None (occurrence: None)
  Receive Date: 20110209
  Receipt Date: 20110202
  Transmission Date: 20110831
  Serious: Yes (Other)
  Sender: FDA-Public Use
  Company Number: 20119856

PATIENT
  Sex: Female

DRUGS (1)
  1. LIORESAL [Suspect]
     Indication: MUSCLE SPASTICITY
     Dosage: DAILY,  INTRATHECAL
     Route: 037

REACTIONS (6)
  - FALL [None]
  - MEDICAL DEVICE COMPLICATION [None]
  - DEVICE LEAKAGE [None]
  - DEVICE MALFUNCTION [None]
  - FEELING ABNORMAL [None]
  - MUSCLE SPASMS [None]
